FAERS Safety Report 6648489-1 (Version None)
Quarter: 2010Q1

REPORT INFORMATION
  Report Type: 
  Country: None (occurrence: None)
  Receive Date: 20100319
  Receipt Date: 20100309
  Transmission Date: 20100710
  Serious: Yes (Other)
  Sender: FDA-Public Use
  Company Number: ALL1-2010-00608

PATIENT
  Age: 8 Year
  Sex: Male

DRUGS (4)
  1. INTUNIV [Suspect]
     Indication: ATTENTION DEFICIT/HYPERACTIVITY DISORDER
     Dosage: 1 MG, 1X/ DAY: QD, ORAL 2 MG, 1X/DAY;QD, ORAL
     Route: 048
     Dates: start: 20091231, end: 20100106
  2. INTUNIV [Suspect]
     Indication: ATTENTION DEFICIT/HYPERACTIVITY DISORDER
     Dosage: 1 MG, 1X/ DAY: QD, ORAL 2 MG, 1X/DAY;QD, ORAL
     Route: 048
     Dates: start: 20100107, end: 20100119
  3. INTUNIV [Suspect]
     Indication: ATTENTION DEFICIT/HYPERACTIVITY DISORDER
     Dosage: 1 MG, 1X/ DAY: QD, ORAL 2 MG, 1X/DAY;QD, ORAL
     Route: 048
     Dates: start: 20100120, end: 20100130
  4. ERGOCALCIFEROL [Concomitant]

REACTIONS (2)
  - HEADACHE [None]
  - REBOUND TACHYCARDIA [None]
